FAERS Safety Report 5663373-8 (Version None)
Quarter: 2008Q1

REPORT INFORMATION
  Report Type: 
  Country: None (occurrence: None)
  Receive Date: 20080313
  Receipt Date: 20080307
  Transmission Date: 20080703
  Serious: Yes (Hospitalization)
  Sender: FDA-Public Use
  Company Number: GB-SANOFI-SYNTHELABO-F01200701280

PATIENT
  Sex: Male

DRUGS (2)
  1. GEMCITABINE [Suspect]
     Route: 042
     Dates: start: 20070910, end: 20070910
  2. OXALIPLATIN [Suspect]
     Indication: PRIMITIVE NEUROECTODERMAL TUMOUR
     Route: 042
     Dates: start: 20070910, end: 20070910

REACTIONS (1)
  - CEREBRAL HAEMORRHAGE [None]
